FAERS Safety Report 9628771 (Version 1)
Quarter: 2013Q4

REPORT INFORMATION
  Report Type: Spontaneous
  Country: DE (occurrence: DE)
  Receive Date: 20131017
  Receipt Date: 20131017
  Transmission Date: 20140711
  Serious: Yes (Congenital Anomaly, Other)
  Sender: FDA-Public Use
  Company Number: DE-MYLANLABS-2013S1023090

PATIENT
  Age: 32 Year
  Sex: Female
  Weight: 106 kg

DRUGS (10)
  1. ENALAPRIL [Suspect]
     Indication: HYPERTENSION
     Dosage: 20 [MG/D ]
     Route: 048
     Dates: end: 20080918
  2. VOTUM /01635402/ [Suspect]
     Indication: HYPERTENSION
     Dosage: 40 [MG/D ]
     Route: 048
     Dates: end: 20080918
  3. CARMEN /01366402/ [Suspect]
     Indication: HYPERTENSION
     Dosage: 20 [MG/D ]
     Route: 048
     Dates: end: 20080918
  4. KALETRA [Suspect]
     Indication: HIV INFECTION
     Dosage: 500 [MG/D ] / 2000 [MG/D ]
     Route: 048
  5. TRUVADA [Suspect]
     Indication: HIV INFECTION
     Dosage: 200 [MG/D ] / 245 [MG/D ]
     Route: 048
  6. BELOC-ZOC COMP [Concomitant]
     Indication: HYPERTENSION
     Route: 048
  7. NIFEDIPIN [Concomitant]
     Indication: HYPERTENSION
     Route: 048
  8. METHYLDOPA [Concomitant]
     Indication: HYPERTENSION
     Route: 048
     Dates: start: 20080920, end: 20090226
  9. RITONAVIR [Concomitant]
     Indication: HIV INFECTION
  10. EMTRICITABINE [Concomitant]
     Indication: HIV INFECTION

REACTIONS (2)
  - Exposure during pregnancy [Recovered/Resolved]
  - Polyhydramnios [Recovered/Resolved]
